FAERS Safety Report 5526671-4 (Version None)
Quarter: 2007Q4

REPORT INFORMATION
  Report Type: 
  Country: None (occurrence: None)
  Receive Date: 20071127
  Receipt Date: 20071113
  Transmission Date: 20080405
  Serious: Yes (Hospitalization)
  Sender: FDA-Public Use
  Company Number: US-AMGEN-QUU250473

PATIENT
  Sex: Female

DRUGS (2)
  1. ENBREL [Suspect]
     Indication: RHEUMATOID ARTHRITIS
     Route: 058
     Dates: start: 20061121
  2. METHOTREXATE [Concomitant]

REACTIONS (12)
  - BLOOD IRON DECREASED [None]
  - CHOLELITHIASIS [None]
  - DIARRHOEA [None]
  - HEADACHE [None]
  - HISTOPLASMOSIS [None]
  - JAUNDICE [None]
  - LIVER FUNCTION TEST ABNORMAL [None]
  - LUNG INFILTRATION [None]
  - NAUSEA [None]
  - PYREXIA [None]
  - SENSORY DISTURBANCE [None]
  - VOMITING [None]
